FAERS Safety Report 13239938 (Version 1)
Quarter: 2017Q1

REPORT INFORMATION
  Report Type: Spontaneous
  Country: US (occurrence: US)
  Receive Date: 20170216
  Receipt Date: 20170216
  Transmission Date: 20170428
  Serious: Yes (Other)
  Sender: FDA-Public Use
  Company Number: US-PFIZER INC-2017063854

PATIENT
  Age: 40 Year
  Sex: Female
  Weight: 86 kg

DRUGS (6)
  1. SYNTHROID [Suspect]
     Active Substance: LEVOTHYROXINE SODIUM
     Dosage: 100 UG, DAILY
     Dates: start: 20161124
  2. SYNTHROID [Suspect]
     Active Substance: LEVOTHYROXINE SODIUM
     Dosage: 125 UG, 1X/DAY
     Dates: start: 20160927
  3. SYNTHROID [Suspect]
     Active Substance: LEVOTHYROXINE SODIUM
     Dosage: 112 UG, DAILY
     Dates: start: 201701
  4. SYNTHROID [Suspect]
     Active Substance: LEVOTHYROXINE SODIUM
     Dosage: 125 UG, DAILY
     Dates: start: 20161018
  5. CYTOMEL [Suspect]
     Active Substance: LIOTHYRONINE SODIUM
     Indication: HYPOTHYROIDISM
     Dosage: 5 UG, 1X/DAY
  6. SYNTHROID [Suspect]
     Active Substance: LEVOTHYROXINE SODIUM
     Indication: AUTOIMMUNE THYROIDITIS
     Dosage: 112 UG, DAILY
     Dates: start: 2009

REACTIONS (19)
  - Drug ineffective [Recovered/Resolved]
  - Eyelid oedema [Not Recovered/Not Resolved]
  - Malaise [Unknown]
  - Swelling face [Not Recovered/Not Resolved]
  - Local swelling [Not Recovered/Not Resolved]
  - Dyspnoea [Not Recovered/Not Resolved]
  - Intentional product misuse [Not Recovered/Not Resolved]
  - Hypertension [Unknown]
  - Fatigue [Unknown]
  - Paraesthesia [Recovering/Resolving]
  - Chest pain [Not Recovered/Not Resolved]
  - Palpitations [Unknown]
  - Muscular weakness [Recovering/Resolving]
  - Pain [Recovering/Resolving]
  - Heart rate increased [Unknown]
  - Reaction to drug excipients [Recovering/Resolving]
  - Gluten sensitivity [Not Recovered/Not Resolved]
  - Hyperthyroidism [Unknown]
  - Feeling abnormal [Unknown]

NARRATIVE: CASE EVENT DATE: 2016
